FAERS Safety Report 19386909 (Version 12)
Quarter: 2022Q4

REPORT INFORMATION
  Report Type: Report from Study
  Country: NL (occurrence: NL)
  Receive Date: 20210608
  Receipt Date: 20221014
  Transmission Date: 20230113
  Serious: Yes (Hospitalization, Other)
  Sender: FDA-Public Use
  Company Number: NL-ABBVIE-21K-114-3936832-00

PATIENT
  Age: 68 Year
  Sex: Male

DRUGS (6)
  1. CARBIDOPA\LEVODOPA [Suspect]
     Active Substance: CARBIDOPA\LEVODOPA
     Indication: Parkinson^s disease
     Dosage: MD: 6.3 ML, CD: 2.3  ML/H, ED: 1.0 ML DURATION TEXT: REMAINS AT 16 HOURS
     Route: 050
     Dates: start: 20210503, end: 2021
  2. CARBIDOPA\LEVODOPA [Suspect]
     Active Substance: CARBIDOPA\LEVODOPA
     Dosage: MD: 9.3 ML, CD: 2.3 ML/H, ED: 1.0 ML DURATION TEXT: REMAINS AT 16 HOURS
     Route: 050
     Dates: start: 2021
  3. CARBIDOPA\LEVODOPA [Suspect]
     Active Substance: CARBIDOPA\LEVODOPA
     Dosage: MD: 10.5 ML, CD: 3.7 ML/H, ED: 2.5 ML DURATION TEXT: REMAINS AT 16 HOURS
     Route: 050
     Dates: start: 2022
  4. CLOZAPINE [Suspect]
     Active Substance: CLOZAPINE
     Indication: Product used for unknown indication
     Route: 065
  5. RIVASTIGMINE [Concomitant]
     Active Substance: RIVASTIGMINE
     Indication: Product used for unknown indication
  6. POLYETHYLENE GLYCOLS [Concomitant]
     Active Substance: POLYETHYLENE GLYCOLS
     Indication: Bowel movement irregularity

REACTIONS (34)
  - Rib fracture [Not Recovered/Not Resolved]
  - Head injury [Not Recovered/Not Resolved]
  - Hip fracture [Not Recovered/Not Resolved]
  - Loss of consciousness [Recovered/Resolved]
  - Fall [Recovered/Resolved]
  - Delirium [Not Recovered/Not Resolved]
  - General physical health deterioration [Recovering/Resolving]
  - Device difficult to use [Not Recovered/Not Resolved]
  - Incontinence [Not Recovered/Not Resolved]
  - Nocturia [Recovering/Resolving]
  - Urinary tract infection [Not Recovered/Not Resolved]
  - Cognitive disorder [Not Recovered/Not Resolved]
  - Confusional arousal [Not Recovered/Not Resolved]
  - Injury [Unknown]
  - Device issue [Unknown]
  - Fall [Recovered/Resolved]
  - Gait disturbance [Not Recovered/Not Resolved]
  - Malaise [Recovered/Resolved]
  - On and off phenomenon [Not Recovered/Not Resolved]
  - Dyskinesia [Not Recovered/Not Resolved]
  - Stoma complication [Unknown]
  - Malaise [Recovering/Resolving]
  - Facial spasm [Not Recovered/Not Resolved]
  - Weight decreased [Recovering/Resolving]
  - Abnormal dreams [Not Recovered/Not Resolved]
  - Memory impairment [Not Recovered/Not Resolved]
  - Device issue [Not Recovered/Not Resolved]
  - Hallucination [Recovered/Resolved]
  - Delirium [Not Recovered/Not Resolved]
  - Urinary tract infection [Unknown]
  - Freezing phenomenon [Not Recovered/Not Resolved]
  - Pain [Unknown]
  - Parkinson^s disease [Unknown]
  - Hallucination [Not Recovered/Not Resolved]

NARRATIVE: CASE EVENT DATE: 20210101
